FAERS Safety Report 25576598 (Version 1)
Quarter: 2025Q3

REPORT INFORMATION
  Report Type: Spontaneous
  Country: US (occurrence: US)
  Receive Date: 20250718
  Receipt Date: 20250718
  Transmission Date: 20251021
  Serious: No
  Sender: ROCHE
  Company Number: US-ROCHE-10000336223

PATIENT
  Age: 59 Year
  Sex: Female

DRUGS (1)
  1. XOLAIR [Suspect]
     Active Substance: OMALIZUMAB
     Indication: Product used for unknown indication
     Route: 058
     Dates: start: 202406

REACTIONS (4)
  - Exposure via skin contact [Unknown]
  - Injection site bruising [Unknown]
  - Urticaria [Unknown]
  - Device issue [Unknown]

NARRATIVE: CASE EVENT DATE: 20250709
